FAERS Safety Report 16024463 (Version 3)
Quarter: 2019Q2

REPORT INFORMATION
  Report Type: Spontaneous
  Country: US (occurrence: US)
  Receive Date: 20190301
  Receipt Date: 20190515
  Transmission Date: 20190711
  Serious: Yes (Life-Threatening, Hospitalization, Disabling, Other)
  Sender: FDA-Public Use
  Company Number: US-PFIZER INC-2016111934

PATIENT
  Age: 73 Year
  Sex: Female

DRUGS (56)
  1. PROAIR HFA [Concomitant]
     Active Substance: ALBUTEROL SULFATE
     Dosage: 720 UG, DAILY
  2. BABY ASPIRIN [Concomitant]
     Active Substance: ASPIRIN
     Indication: TRANSIENT ISCHAEMIC ATTACK
     Dosage: 81 MG, 1X/DAY(ONCE A DAY)
  3. FLONASE [Concomitant]
     Active Substance: FLUTICASONE PROPIONATE
     Dosage: 200 UG, DAILY (SPRAY TWICE IN EACH NOSTRILS)
     Route: 045
  4. ESTRADIOL. [Concomitant]
     Active Substance: ESTRADIOL
     Dosage: 1 G, 1X/DAY
     Route: 067
  5. LYRICA [Suspect]
     Active Substance: PREGABALIN
     Indication: FIBROMYALGIA
     Dosage: 100 MG, 3X/DAY
     Route: 048
  6. VITAMIN D3 [Concomitant]
     Active Substance: CHOLECALCIFEROL
     Dosage: 1000 IU, 2X/DAY
  7. INSULIN ASPART [Concomitant]
     Active Substance: INSULIN ASPART
     Dosage: UNK UNK, AS NEEDED (100 UNIT/ML SOLUTION AS DIRECTED PRN)
  8. DONEPEZIL HYDROCHLORIDE. [Concomitant]
     Active Substance: DONEPEZIL HYDROCHLORIDE
     Indication: DEMENTIA
     Dosage: 10 MG, 1X/DAY(10MG TABLET AT BEDTIME)
     Route: 048
  9. BENADRYL [Concomitant]
     Active Substance: DIPHENHYDRAMINE HYDROCHLORIDE
     Indication: HYPERSENSITIVITY
     Dosage: 25 MG, AS NEEDED
     Route: 048
  10. TRAMADOL. [Concomitant]
     Active Substance: TRAMADOL
     Indication: PAIN
     Dosage: 50 MG, AS NEEDED(50MG EVERY 12 HOURS AS NEEDED)
     Route: 048
  11. CLONAZEPAM. [Concomitant]
     Active Substance: CLONAZEPAM
     Indication: RESTLESS LEGS SYNDROME
     Dosage: 0.5 MG, AS NEEDED(0.5MG TABLET AS NEEDED AT BEDTIME)
     Route: 048
  12. ZYRTEC [Concomitant]
     Active Substance: CETIRIZINE HYDROCHLORIDE
     Dosage: 15 MG, 2X/DAY
     Route: 048
  13. LYRICA [Suspect]
     Active Substance: PREGABALIN
     Indication: NEUROPATHY PERIPHERAL
     Dosage: 100 MG, AS NEEDED
     Route: 048
  14. KETOROLAC TROMETHAMINE. [Concomitant]
     Active Substance: KETOROLAC TROMETHAMINE
     Indication: PAIN
     Dosage: UNK UNK, 3X/DAY(10 TABLET 1 TABLET PO TID MAY NOT EXCEED 3 CONSECUTIVE DAYS EVERY 8 HOURS IF NEEDED)
     Route: 048
  15. CETIRIZINE HCL [Concomitant]
     Active Substance: CETIRIZINE HYDROCHLORIDE
     Dosage: 10 MG, AS NEEDED(ONCE A DAY)
  16. NAMENDA [Concomitant]
     Active Substance: MEMANTINE HYDROCHLORIDE
     Indication: DEMENTIA
     Dosage: 10 MG, 2X/DAY
     Route: 048
  17. PROMETHAZINE HCL [Concomitant]
     Active Substance: PROMETHAZINE HYDROCHLORIDE
     Indication: NAUSEA
     Dosage: 25 MG, AS NEEDED(AS NEEDED EVERY 12 HRS)
     Route: 048
  18. IBUPROFEN. [Concomitant]
     Active Substance: IBUPROFEN
     Indication: PAIN
     Dosage: 400 MG, AS NEEDED
     Route: 048
  19. CARTIA XT [Concomitant]
     Active Substance: DILTIAZEM HYDROCHLORIDE
     Dosage: 120 MG, 2X/DAY
     Route: 048
  20. VICTOZA [Concomitant]
     Active Substance: LIRAGLUTIDE
     Indication: DIABETES MELLITUS
     Dosage: 1.8 MG, 1X/DAY(SUB-Q ONCE A DAY)
     Route: 058
  21. HUMALOG [Concomitant]
     Active Substance: INSULIN LISPRO
     Indication: DIABETES MELLITUS
     Dosage: UNK
  22. POTASSIUM CHLORIDE. [Concomitant]
     Active Substance: POTASSIUM CHLORIDE
     Indication: BLOOD POTASSIUM DECREASED
  23. POTASSIUM CHLORIDE. [Concomitant]
     Active Substance: POTASSIUM CHLORIDE
     Indication: BLOOD MAGNESIUM DECREASED
  24. ASPIRIN. [Concomitant]
     Active Substance: ASPIRIN
     Dosage: 81 MG, 1X/DAY
     Route: 048
  25. ESTRADIOL. [Concomitant]
     Active Substance: ESTRADIOL
     Dosage: 1 G, 2X/WEEK
     Route: 067
  26. SPIRONOLACTONE. [Concomitant]
     Active Substance: SPIRONOLACTONE
     Dosage: 25 MG, 1X/DAY
     Route: 048
  27. AZELASTINE/FLUTICASONE [Concomitant]
     Dosage: UNK UNK, 2X/DAY (137-50 MCG/ACT SUSPENSION 1 PUFF IN EACH NOSTRIL TWICE A DAY)
     Route: 045
  28. PROMETHAZINE HCL [Concomitant]
     Active Substance: PROMETHAZINE HYDROCHLORIDE
     Indication: VOMITING
  29. FLEXERIL [CEFIXIME] [Concomitant]
     Active Substance: CEFIXIME
     Dosage: 10 MG, 3X/DAY
  30. METFORMIN [Concomitant]
     Active Substance: METFORMIN HYDROCHLORIDE
     Indication: DIABETES MELLITUS
     Dosage: 500 MG, 2X/DAY
     Route: 048
  31. LANTUS [Concomitant]
     Active Substance: INSULIN GLARGINE
     Indication: DIABETES MELLITUS
     Dosage: 7 IU, 1X/DAY(: 7 UNITS IN THE EVENING, INJECTION SUB-Q)
     Route: 058
  32. POTASSIUM CHLORIDE. [Concomitant]
     Active Substance: POTASSIUM CHLORIDE
     Indication: BLOOD SODIUM DECREASED
  33. PROAIR HFA [Concomitant]
     Active Substance: ALBUTEROL SULFATE
     Dosage: UNK UNK, AS NEEDED(2 PUFFS AS NEEDED EVERY 4 HRS)
  34. EFFEXOR [Concomitant]
     Active Substance: VENLAFAXINE HYDROCHLORIDE
     Dosage: 75 MG, 1X/DAY
     Route: 048
  35. EPINEPHRINE HCL [Concomitant]
     Active Substance: EPINEPHRINE
     Dosage: UNK
  36. MAGNESIUM OXIDE. [Concomitant]
     Active Substance: MAGNESIUM OXIDE
     Dosage: 800 MG, UNK
     Route: 048
  37. CARTIA XT [Concomitant]
     Active Substance: DILTIAZEM HYDROCHLORIDE
     Dosage: 40 MG, UNK
  38. FLONASE [Concomitant]
     Active Substance: FLUTICASONE PROPIONATE
     Dosage: UNK UNK, 1X/DAY(ONCE A DAY)
     Route: 045
  39. TORADOL [Concomitant]
     Active Substance: KETOROLAC TROMETHAMINE
     Dosage: 10 MG, AS NEEDED  (10MG 1 TABLET THREE TIMES A DAY AS NEEDED)
     Route: 048
  40. MULTAQ [Concomitant]
     Active Substance: DRONEDARONE
     Dosage: 400 MG, 1X/DAY
     Route: 048
  41. MERCAPTOPURINE. [Concomitant]
     Active Substance: MERCAPTOPURINE
     Indication: AUTOIMMUNE HEPATITIS
     Dosage: 50 MG, DAILY
     Route: 048
  42. VENLAFAXINE [VENLAFAXINE HYDROCHLORIDE] [Concomitant]
     Indication: VASCULAR DEMENTIA
     Dosage: 75 MG, 1X/DAY(ONCE A DAY)
     Route: 048
     Dates: start: 2008
  43. ATORVASTATIN [Concomitant]
     Active Substance: ATORVASTATIN
     Indication: LIPIDS ABNORMAL
     Dosage: 10 MG, 1X/DAY(10MG ONCE A DAY AT NIGHT TABLET)
     Route: 048
  44. INSULIN GLARGINE [Concomitant]
     Active Substance: INSULIN GLARGINE
     Dosage: 7 IU, 1X/DAY
     Route: 058
  45. PROLIA [Concomitant]
     Active Substance: DENOSUMAB
     Dosage: 60 MG, UNK (EVERY 6 MONTH)
     Route: 058
  46. OMEGA 3 FISH OILS [Concomitant]
     Active Substance: OMEGA-3 FATTY ACIDS
     Dosage: UNK
  47. POTASSIUM CHLORIDE. [Concomitant]
     Active Substance: POTASSIUM CHLORIDE
     Indication: BLOOD POTASSIUM ABNORMAL
     Dosage: 10 MEQ, 2X/DAY(10 MEQ ER TABLET TWICE A DAY)
  48. LIRAGLUTIDE [Concomitant]
     Active Substance: LIRAGLUTIDE
     Indication: DIABETES MELLITUS
     Dosage: 1.8 MG, DAILY
     Route: 058
  49. POTASSIUM CHLORIDE. [Concomitant]
     Active Substance: POTASSIUM CHLORIDE
     Dosage: 20 MEQ, DAILY
     Route: 048
  50. DEXILANT [Concomitant]
     Active Substance: DEXLANSOPRAZOLE
     Indication: GASTROOESOPHAGEAL REFLUX DISEASE
     Dosage: 60 MG, 1X/DAY(ONCE A DAY IN MORNING)
     Route: 048
  51. CARTIA XT [Concomitant]
     Active Substance: DILTIAZEM HYDROCHLORIDE
     Indication: HYPERTENSION
     Dosage: 120 MG, 1X/DAY(ONCE A DAYIN THE EVENING)
     Route: 048
  52. CARTIA XT [Concomitant]
     Active Substance: DILTIAZEM HYDROCHLORIDE
     Dosage: 20 MG, UNK
  53. ATORVASTATIN [Concomitant]
     Active Substance: ATORVASTATIN
     Indication: BLOOD CHOLESTEROL ABNORMAL
  54. METHOCARBAMOL. [Concomitant]
     Active Substance: METHOCARBAMOL
     Indication: PAIN
     Dosage: 500 MG, AS NEEDED(ONE TABLET EVERY FOUR HOURS AS NEEDED)
     Route: 048
  55. COENZYME Q10 [Concomitant]
     Active Substance: UBIDECARENONE
     Dosage: 100 MG, DAILY
     Route: 048
  56. INSULIN LISPRO [Concomitant]
     Active Substance: INSULIN LISPRO
     Indication: DIABETES MELLITUS
     Dosage: UNK UNK, 3X/DAY
     Route: 058

REACTIONS (27)
  - Supraventricular tachycardia [Unknown]
  - Mitral valve incompetence [Unknown]
  - Radiculopathy [Unknown]
  - Malaise [Unknown]
  - Transaminases increased [Unknown]
  - Palpitations [Unknown]
  - Constipation [Unknown]
  - Musculoskeletal discomfort [Unknown]
  - Drug withdrawal syndrome [Recovering/Resolving]
  - Fatigue [Unknown]
  - Weight decreased [Unknown]
  - Nausea [Unknown]
  - Aortic valve stenosis [Unknown]
  - Hepatic steatosis [Unknown]
  - Decreased appetite [Unknown]
  - Neurogenic bladder [Unknown]
  - Lethargy [Unknown]
  - Somnolence [Unknown]
  - Aortic arteriosclerosis [Unknown]
  - Cataract [Unknown]
  - Asthenia [Unknown]
  - Rhinitis [Unknown]
  - Essential hypertension [Unknown]
  - Umbilical hernia [Unknown]
  - Abdominal discomfort [Unknown]
  - Arteriosclerosis coronary artery [Unknown]
  - Diarrhoea [Unknown]

NARRATIVE: CASE EVENT DATE: 201003
